FAERS Safety Report 15825596 (Version 1)
Quarter: 2018Q4

REPORT INFORMATION
  Report Type: Spontaneous
  Country: US (occurrence: US)
  Receive Date: 20181217
  Receipt Date: 20181217
  Transmission Date: 20190205
  Serious: Yes (Life-Threatening, Disabling)
  Sender: FDA-Public Use
  Company Number: None

PATIENT
  Age: 68 Year
  Sex: Female
  Weight: 88.45 kg

DRUGS (10)
  1. ENALAPRIL [Concomitant]
     Active Substance: ENALAPRIL
  2. LIPITOR [Suspect]
     Active Substance: ATORVASTATIN CALCIUM
     Indication: BLOOD CHOLESTEROL INCREASED
     Dosage: ?          QUANTITY:1 PILL;?
     Route: 048
     Dates: start: 2012, end: 2015
  3. NOVOLIN 70-30 [Concomitant]
  4. ASPIRINS [Concomitant]
  5. GABAPENTIN. [Concomitant]
     Active Substance: GABAPENTIN
  6. SERTRALINE [Concomitant]
     Active Substance: SERTRALINE HYDROCHLORIDE
  7. CILOSTAZOL. [Concomitant]
     Active Substance: CILOSTAZOL
  8. VITAMINS B [Concomitant]
  9. VITAMINS D [Concomitant]
  10. VITAMINS A [Concomitant]

REACTIONS (4)
  - Gait inability [None]
  - Myalgia [None]
  - Asthenia [None]
  - Pain in extremity [None]

NARRATIVE: CASE EVENT DATE: 2013
